FAERS Safety Report 6170116-0 (Version None)
Quarter: 2009Q2

REPORT INFORMATION
  Report Type: 
  Country: None (occurrence: None)
  Receive Date: 20090428
  Receipt Date: 20090420
  Transmission Date: 20091009
  Serious: Yes (Other)
  Sender: FDA-Public Use
  Company Number: B0571555A

PATIENT
  Age: 32 Year
  Sex: Male

DRUGS (7)
  1. ZIDOVUDINE [Suspect]
     Indication: HIV INFECTION
  2. LAMIVUDINE [Suspect]
     Indication: HIV INFECTION
  3. LOPINAVIR AND RITONAVIR [Suspect]
     Indication: HIV INFECTION
  4. DEXAMETHASONE 4MG TAB [Concomitant]
  5. CARBAMAZEPINE [Concomitant]
  6. ABACAVIR [Concomitant]
  7. CORTICOSTEROIDS [Concomitant]

REACTIONS (10)
  - ASPERGILLOMA [None]
  - BONE MARROW FAILURE [None]
  - CENTRAL NERVOUS SYSTEM LESION [None]
  - CONFUSIONAL STATE [None]
  - ENDOPHTHALMITIS [None]
  - EYELID PTOSIS [None]
  - OCULAR HYPERAEMIA [None]
  - ORAL CANDIDIASIS [None]
  - PANCYTOPENIA [None]
  - PURULENT DISCHARGE [None]
